FAERS Safety Report 18894393 (Version 7)
Quarter: 2022Q3

REPORT INFORMATION
  Report Type: Report from Study
  Country: US (occurrence: US)
  Receive Date: 20210215
  Receipt Date: 20220802
  Transmission Date: 20221027
  Serious: Yes (Other)
  Sender: FDA-Public Use
  Company Number: US-HZN-2021-000154

PATIENT

DRUGS (4)
  1. ACTIMMUNE [Suspect]
     Active Substance: INTERFERON GAMMA-1B
     Indication: Leukocytosis
     Dosage: 55 UG
     Dates: start: 20201218
  2. ACTIMMUNE [Suspect]
     Active Substance: INTERFERON GAMMA-1B
     Indication: Chronic granulomatous disease
     Dosage: 55 UG
     Route: 058
     Dates: start: 20201230
  3. ACTIMMUNE [Suspect]
     Active Substance: INTERFERON GAMMA-1B
     Dosage: 98 UG (0.49ML) ON MONDAYS, WEDNESDAYS, AND FRIDAYS
     Route: 058
     Dates: start: 20210103
  4. ACTIMMUNE [Suspect]
     Active Substance: INTERFERON GAMMA-1B
     Dosage: 55 UG
     Route: 058
     Dates: start: 20220726

REACTIONS (13)
  - Liver abscess [Unknown]
  - Nervousness [Unknown]
  - Pain [Unknown]
  - Anxiety [Unknown]
  - Injection site bruising [Unknown]
  - Injection site erythema [Unknown]
  - Injection site haemorrhage [Unknown]
  - Injection site pain [Not Recovered/Not Resolved]
  - Influenza like illness [Recovered/Resolved]
  - Pyrexia [Unknown]
  - Product administration error [Unknown]
  - Incorrect dose administered [Unknown]
  - Lymphadenopathy [Recovered/Resolved]

NARRATIVE: CASE EVENT DATE: 20210101
